FAERS Safety Report 24177166 (Version 1)
Quarter: 2024Q3

REPORT INFORMATION
  Report Type: Spontaneous
  Country: US (occurrence: US)
  Receive Date: 20240806
  Receipt Date: 20240806
  Transmission Date: 20241016
  Serious: Yes (Hospitalization, Other)
  Sender: AMNEAL
  Company Number: US-AMNEAL-2024-AMRX-01028

PATIENT
  Age: 42 Year
  Sex: Male
  Weight: 131.52 kg

DRUGS (1)
  1. BACLOFEN [Suspect]
     Active Substance: BACLOFEN
     Indication: Product used for unknown indication
     Dosage: 329.52534 MICROGRAM, DAILY
     Route: 037

REACTIONS (5)
  - Acinetobacter infection [Recovered/Resolved]
  - Wound infection bacterial [Recovered/Resolved]
  - Night sweats [Recovered/Resolved]
  - Chills [Recovered/Resolved]
  - Wound dehiscence [Unknown]

NARRATIVE: CASE EVENT DATE: 20231128
